FAERS Safety Report 16287411 (Version 1)
Quarter: 2019Q2

REPORT INFORMATION
  Report Type: Spontaneous
  Country: CN (occurrence: CN)
  Receive Date: 20190508
  Receipt Date: 20190508
  Transmission Date: 20190711
  Serious: Yes (Other)
  Sender: FDA-Public Use
  Company Number: CN-PFIZER INC-2019189490

PATIENT
  Age: 75 Year
  Sex: Male
  Weight: 66 kg

DRUGS (2)
  1. SOLU-MEDROL [Suspect]
     Active Substance: METHYLPREDNISOLONE SODIUM SUCCINATE
     Indication: SHOCK
     Dosage: 1000 MG, 1X/DAY
     Route: 041
     Dates: start: 20190424, end: 20190425
  2. SODIUM CHLORIDE. [Concomitant]
     Active Substance: SODIUM CHLORIDE
     Indication: VEHICLE SOLUTION USE
     Dosage: 500 ML, 1X/DAY
     Route: 041
     Dates: start: 20190424, end: 20190425

REACTIONS (6)
  - Urine analysis abnormal [Unknown]
  - Swelling face [Recovering/Resolving]
  - Agitation [Recovered/Resolved]
  - Weight increased [Recovered/Resolved]
  - Flushing [Unknown]
  - Anuria [Unknown]

NARRATIVE: CASE EVENT DATE: 20190424
